FAERS Safety Report 7689304-7 (Version None)
Quarter: 2011Q3

REPORT INFORMATION
  Report Type: 
  Country: None (occurrence: None)
  Receive Date: 20110817
  Receipt Date: 20110805
  Transmission Date: 20111222
  Serious: Yes (Hospitalization)
  Sender: FDA-Public Use
  Company Number: US-BAYER-201039793NA

PATIENT
  Age: 35 Year
  Sex: Female
  Weight: 91 kg

DRUGS (2)
  1. DOXYCYCLINE [Concomitant]
  2. YAZ [Suspect]
     Indication: CONTRACEPTION
     Route: 048
     Dates: start: 20080829, end: 20081002

REACTIONS (9)
  - PULMONARY EMBOLISM [None]
  - HYPOAESTHESIA [None]
  - INJURY [None]
  - EMOTIONAL DISTRESS [None]
  - ASTHENIA [None]
  - DYSPNOEA [None]
  - PAIN [None]
  - PLEURITIC PAIN [None]
  - ANXIETY [None]
